FAERS Safety Report 8004709-2 (Version None)
Quarter: 2011Q4

REPORT INFORMATION
  Report Type: 
  Country: None (occurrence: None)
  Receive Date: 20111223
  Receipt Date: 20111219
  Transmission Date: 20120403
  Serious: Yes (Death)
  Sender: FDA-Public Use
  Company Number: JP-JNJFOC-20110207439

PATIENT
  Age: 55 Year
  Sex: Male

DRUGS (4)
  1. RISPERDAL CONSTA [Suspect]
     Route: 030
     Dates: start: 20090101
  2. CEPHARANTHINE [Concomitant]
     Route: 048
  3. RISPERDAL CONSTA [Suspect]
     Indication: PRODUCT USED FOR UNKNOWN INDICATION
     Route: 030
     Dates: start: 20090101
  4. SILECE [Concomitant]
     Route: 048

REACTIONS (1)
  - CEREBRAL INFARCTION [None]
